FAERS Safety Report 10219995 (Version 1)
Quarter: 2014Q2

REPORT INFORMATION
  Report Type: Spontaneous
  Country: US (occurrence: US)
  Receive Date: 20140605
  Receipt Date: 20140605
  Transmission Date: 20141212
  Serious: No
  Sender: FDA-Public Use
  Company Number: US-TEVA-486321USA

PATIENT
  Age: 31 Year
  Sex: Female
  Weight: 64.92 kg

DRUGS (2)
  1. PARAGARD 380A [Suspect]
     Indication: CONTRACEPTION
     Route: 015
     Dates: start: 20140501, end: 20140529
  2. PARAGARD 380A [Suspect]
     Route: 015
     Dates: start: 20140530

REACTIONS (1)
  - Device expulsion [Recovered/Resolved]
